FAERS Safety Report 10032991 (Version 2)
Quarter: 2014Q2

REPORT INFORMATION
  Report Type: Spontaneous
  Country: JP (occurrence: JP)
  Receive Date: 20140324
  Receipt Date: 20140403
  Transmission Date: 20141212
  Serious: Yes (Hospitalization)
  Sender: FDA-Public Use
  Company Number: JP-ABBVIE-14P-087-1215958-00

PATIENT
  Age: 45 Year
  Sex: Female

DRUGS (3)
  1. CLARITHROMYCIN [Suspect]
     Indication: HELICOBACTER INFECTION
     Dates: start: 20130827, end: 20130902
  2. AMOXICILLIN [Suspect]
     Indication: HELICOBACTER INFECTION
     Dates: start: 20130827, end: 20130902
  3. OMEPRAZOLE [Suspect]
     Indication: HELICOBACTER INFECTION
     Dates: start: 20130827, end: 20130902

REACTIONS (1)
  - Enterocolitis haemorrhagic [Recovering/Resolving]
